FAERS Safety Report 6370837-0 (Version None)
Quarter: 2009Q3

REPORT INFORMATION
  Report Type: 
  Country: None (occurrence: None)
  Receive Date: 20090923
  Receipt Date: 20071119
  Transmission Date: 20100115
  Serious: Yes (Other)
  Sender: FDA-Public Use
  Company Number: US-ASTRAZENECA-2006UW23905

PATIENT
  Sex: Female
  Weight: 102.1 kg

DRUGS (24)
  1. SEROQUEL [Suspect]
     Indication: BIPOLAR DISORDER
     Route: 048
     Dates: start: 20010101, end: 20060501
  2. SEROQUEL [Suspect]
     Indication: DEPRESSION
     Route: 048
     Dates: start: 20010101, end: 20060501
  3. SEROQUEL [Suspect]
     Route: 048
     Dates: start: 20010522
  4. SEROQUEL [Suspect]
     Route: 048
     Dates: start: 20010522
  5. THORAZINE [Concomitant]
     Dates: start: 19800101
  6. ZYPREXA [Concomitant]
     Dates: start: 20000101, end: 20010101
  7. STRATTERA [Concomitant]
     Dates: start: 20070101
  8. LANTUS [Concomitant]
  9. HUMALOG [Concomitant]
  10. NOVOLIN R [Concomitant]
  11. TOPAMAX [Concomitant]
  12. HYDROCODONE [Concomitant]
  13. NEURONTIN [Concomitant]
  14. LIPITOR [Concomitant]
  15. LORATADINE [Concomitant]
  16. ACYCLOVIR [Concomitant]
  17. GLUCAGON [Concomitant]
  18. NAPROXEN [Concomitant]
  19. CYCLOBENZAPRINE [Concomitant]
  20. ZOCOR [Concomitant]
  21. RHINOCORT [Concomitant]
  22. ALBUTEROL [Concomitant]
  23. ZYRTEC [Concomitant]
  24. ACETAMINOPHEN [Concomitant]

REACTIONS (3)
  - DIABETES MELLITUS [None]
  - DIABETIC COMA [None]
  - DIABETIC KETOACIDOSIS [None]
